FAERS Safety Report 9016060 (Version 2)
Quarter: 2013Q1

REPORT INFORMATION
  Report Type: Report from Study
  Country: US (occurrence: US)
  Receive Date: 20130116
  Receipt Date: 20130205
  Transmission Date: 20140127
  Serious: No
  Sender: FDA-Public Use
  Company Number: US-ACTELION-A-US2013-77289

PATIENT
  Age: 49 Year
  Sex: Male

DRUGS (3)
  1. VELETRI [Suspect]
     Indication: PULMONARY ARTERIAL HYPERTENSION
     Dosage: 29 NG/KG, PER MIN
     Route: 042
     Dates: start: 20120823
  2. ADCIRCA [Concomitant]
  3. COUMADIN [Concomitant]

REACTIONS (3)
  - Clostridium difficile colitis [Recovered/Resolved]
  - Colonoscopy [Unknown]
  - Weight decreased [Recovered/Resolved]
